FAERS Safety Report 8060345-3 (Version None)
Quarter: 2012Q1

REPORT INFORMATION
  Report Type: 
  Country: None (occurrence: None)
  Receive Date: 20120120
  Receipt Date: 20111129
  Transmission Date: 20120608
  Serious: No
  Sender: FDA-Public Use
  Company Number: US-NOVEN-11US003690

PATIENT
  Sex: Female
  Weight: 117.91 kg

DRUGS (13)
  1. LISINOPRIL [Concomitant]
  2. FENTANYL [Suspect]
     Dosage: 50 UG/HR, Q 3DAYS
     Route: 062
     Dates: start: 20111119
  3. LEVOTHYROXINE SODIUM [Concomitant]
  4. TEGRETOL [Concomitant]
  5. RANITIDINE [Concomitant]
  6. NAPROXEN [Concomitant]
  7. POTASSIUM CHLORIDE [Concomitant]
  8. EFFEXOR [Concomitant]
  9. LOVASTATIN [Concomitant]
  10. AMITRIPTYLINE HCL [Concomitant]
  11. FENTANYL [Suspect]
     Indication: BACK PAIN
     Dosage: 25 UG/HR, UNK
     Route: 062
     Dates: start: 20111001
  12. FUROSEMIDE [Concomitant]
  13. ZANAFLEX [Concomitant]

REACTIONS (3)
  - DRY MOUTH [None]
  - PAIN IN EXTREMITY [None]
  - HEADACHE [None]
